FAERS Safety Report 25373372 (Version 1)
Quarter: 2025Q2

REPORT INFORMATION
  Report Type: Other
  Country: US (occurrence: US)
  Receive Date: 20250529
  Receipt Date: 20250529
  Transmission Date: 20250717
  Serious: Yes (Hospitalization)
  Sender: CREEKWOOD PHARMACEUTICALS LLC
  Company Number: US-Creekwood Pharmaceuticals LLC-2177687

PATIENT
  Age: 7 Decade
  Sex: Female

DRUGS (4)
  1. RIZATRIPTAN BENZOATE [Suspect]
     Active Substance: RIZATRIPTAN BENZOATE
     Indication: Migraine with aura
  2. TEMAZEPAM [Suspect]
     Active Substance: TEMAZEPAM
  3. ATOGEPANT [Concomitant]
     Active Substance: ATOGEPANT
  4. TENECTEPLASE [Concomitant]
     Active Substance: TENECTEPLASE

REACTIONS (1)
  - Transient global amnesia [Recovered/Resolved]
